FAERS Safety Report 7699540-1 (Version None)
Quarter: 2011Q3

REPORT INFORMATION
  Report Type: 
  Country: None (occurrence: None)
  Receive Date: 20110821
  Receipt Date: 20101222
  Transmission Date: 20111222
  Serious: Yes (Other)
  Sender: FDA-Public Use
  Company Number: US-AMGEN-USASP2010007159

PATIENT

DRUGS (2)
  1. NPLATE [Suspect]
     Dates: start: 20100709, end: 20101001
  2. NPLATE [Suspect]
     Indication: IDIOPATHIC THROMBOCYTOPENIC PURPURA
     Dosage: 3 A?G/KG, UNK
     Dates: start: 20100709, end: 20101010

REACTIONS (1)
  - PLATELET COUNT INCREASED [None]
